FAERS Safety Report 8565159-3 (Version None)
Quarter: 2012Q3

REPORT INFORMATION
  Report Type: 
  Country: None (occurrence: None)
  Receive Date: 20120803
  Receipt Date: 20120730
  Transmission Date: 20120928
  Serious: No
  Sender: FDA-Public Use
  Company Number: US-PFIZER INC-2012151108

PATIENT
  Sex: Male
  Weight: 84.354 kg

DRUGS (15)
  1. TIKOSYN [Suspect]
     Indication: ATRIAL FIBRILLATION
  2. DOXAZOSIN [Concomitant]
     Dosage: 2 MG, DAILY
  3. LASIX [Concomitant]
     Dosage: 40 MG, AS NEEDED
  4. TIKOSYN [Suspect]
     Indication: ARRHYTHMIA
     Dosage: 250 UG, UNK
     Route: 048
  5. VITAMIN B-12 [Concomitant]
     Dosage: UNK, DAILY
  6. VITAMIN D [Concomitant]
     Dosage: UNK
  7. IRON [Concomitant]
     Dosage: 65 MG, DAILY
  8. CHONDROITIN/GLUCOSAMINE [Concomitant]
     Indication: ARTHROPATHY
     Dosage: UNK, 2X/DAY
  9. ACETYLSALICYLIC ACID [Concomitant]
     Dosage: 81 MG, DAILY
  10. CARVEDILOL [Concomitant]
     Dosage: 12.5 MG, 2X/DAY
  11. POTASSIUM [Concomitant]
     Dosage: 20 MG, AS NEEDED
  12. WARFARIN [Concomitant]
     Dosage: 5 MG, DAILY
  13. ENALAPRIL [Concomitant]
     Dosage: 2.5 MG, 2X/DAY
  14. OMEPRAZOLE [Concomitant]
     Dosage: 20 MG, DAILY
  15. PRAVASTATIN [Concomitant]
     Dosage: 40 MG, DAILY

REACTIONS (1)
  - DRUG INEFFECTIVE [None]
